FAERS Safety Report 11787363 (Version 1)
Quarter: 2015Q4

REPORT INFORMATION
  Report Type: Spontaneous
  Country: US (occurrence: US)
  Receive Date: 20151130
  Receipt Date: 20151130
  Transmission Date: 20160305
  Serious: No
  Sender: FDA-Public Use
  Company Number: US-PFIZER INC-2015370112

PATIENT
  Age: 52 Year
  Sex: Female

DRUGS (2)
  1. EFFEXOR XR [Suspect]
     Active Substance: VENLAFAXINE HYDROCHLORIDE
     Indication: MAJOR DEPRESSION
     Dosage: UNK
     Dates: start: 2015, end: 201510
  2. XANAX [Concomitant]
     Active Substance: ALPRAZOLAM
     Indication: DEPRESSION
     Dosage: UNK

REACTIONS (6)
  - Apathy [Recovering/Resolving]
  - Abnormal behaviour [Recovering/Resolving]
  - Somnolence [Recovering/Resolving]
  - Depression [Recovering/Resolving]
  - Crying [Recovering/Resolving]
  - Condition aggravated [Recovering/Resolving]

NARRATIVE: CASE EVENT DATE: 2015
